FAERS Safety Report 8818693 (Version 1)
Quarter: 2012Q4

REPORT INFORMATION
  Report Type: 
  Country: ES (occurrence: ES)
  Receive Date: 20121001
  Receipt Date: 20121001
  Transmission Date: 20130627
  Serious: Yes (Death, Other)
  Sender: FDA-Public Use
  Company Number: ES-ROCHE-1020529

PATIENT

DRUGS (8)
  1. MABTHERA [Suspect]
     Indication: SYSTEMIC LUPUS ERYTHEMATOSUS
     Route: 065
  2. CELLCEPT [Suspect]
     Indication: PROPHYLAXIS AGAINST TRANSPLANT REJECTION
  3. PREDNISOLONE [Concomitant]
     Indication: SYSTEMIC LUPUS ERYTHEMATOSUS
     Dosage: Bolus dose
     Route: 065
  4. PREDNISONE [Concomitant]
     Indication: SYSTEMIC LUPUS ERYTHEMATOSUS
  5. CYCLOPHOSPHAMIDE [Concomitant]
     Indication: SYSTEMIC LUPUS ERYTHEMATOSUS
  6. HYDROXYCHLOROQUINE [Concomitant]
     Indication: SYSTEMIC LUPUS ERYTHEMATOSUS
  7. AZATHIOPRINE [Concomitant]
     Indication: SYSTEMIC LUPUS ERYTHEMATOSUS
  8. METHOTREXATE [Concomitant]
     Indication: SYSTEMIC LUPUS ERYTHEMATOSUS

REACTIONS (27)
  - Sepsis [Fatal]
  - Sepsis [Unknown]
  - Infection [Fatal]
  - Infection [Unknown]
  - Infusion related reaction [Unknown]
  - Anaphylactic reaction [Unknown]
  - Cervical dysplasia [Unknown]
  - Cystitis haemorrhagic [Unknown]
  - Disease progression [Unknown]
  - Thrombocytopenia [Unknown]
  - Diarrhoea [Unknown]
  - Convulsion [Unknown]
  - Breast cancer [Unknown]
  - Pulmonary haemorrhage [Unknown]
  - Pulmonary hypertension [Unknown]
  - Demyelination [Unknown]
  - Peripheral ischaemia [Unknown]
  - Mononeuropathy multiplex [Unknown]
  - Cutaneous lupus erythematosus [Unknown]
  - Cardiac failure [Unknown]
  - Acute respiratory distress syndrome [Unknown]
  - Vomiting [Unknown]
  - Anxiety [Unknown]
  - Headache [Unknown]
  - Oedema [Unknown]
  - Arthralgia [Unknown]
  - Pyrexia [Unknown]
